FAERS Safety Report 9564964 (Version 2)
Quarter: 2013Q3

REPORT INFORMATION
  Report Type: Report from Study
  Country: DE (occurrence: DE)
  Receive Date: 20130930
  Receipt Date: 20130930
  Transmission Date: 20140515
  Serious: Yes (Hospitalization, Other)
  Sender: FDA-Public Use
  Company Number: PHHY2013DE039072

PATIENT
  Age: 54 Year
  Sex: Female

DRUGS (4)
  1. INTERFERON BETA-1B [Suspect]
     Indication: MULTIPLE SCLEROSIS
     Dosage: 250 UG/ML, QOD
     Route: 058
     Dates: start: 20121026
  2. IBUPROFEN [Concomitant]
     Indication: ANTIVIRAL PROPHYLAXIS
     Dosage: 600 MG, EVERY OTHER DAY
     Route: 048
     Dates: start: 201210
  3. RANITIDIN [Concomitant]
     Indication: GASTROINTESTINAL DISORDER
     Dosage: 300 MG, UNK
     Route: 048
     Dates: start: 201211
  4. OPIPRAMOL [Concomitant]
     Indication: DEPRESSION
     Dosage: 75 MG, UNK
     Route: 048
     Dates: start: 201302

REACTIONS (27)
  - Cerebral infarction [Recovering/Resolving]
  - Hemiparesis [Not Recovered/Not Resolved]
  - Speech disorder [Recovered/Resolved]
  - Dysphagia [Recovered/Resolved]
  - Gait disturbance [Unknown]
  - Burning sensation [Unknown]
  - Feeling cold [Unknown]
  - Pulmonary embolism [Recovered/Resolved]
  - Angina pectoris [Unknown]
  - Multiple sclerosis relapse [Unknown]
  - Eyelid ptosis [Unknown]
  - Vision blurred [Unknown]
  - Malaise [Unknown]
  - Tremor [Unknown]
  - Lhermitte^s sign [Unknown]
  - Hypoaesthesia [Unknown]
  - Paraesthesia [Unknown]
  - Intracranial aneurysm [Unknown]
  - Sleep disorder [Unknown]
  - Vitamin D decreased [Unknown]
  - Spinal cord disorder [Unknown]
  - Sensory disturbance [Unknown]
  - Merycism [Unknown]
  - Middle insomnia [Unknown]
  - Depressive symptom [Unknown]
  - Anxiety [Unknown]
  - Depressed mood [Unknown]
